FAERS Safety Report 5570359-0 (Version None)
Quarter: 2007Q4

REPORT INFORMATION
  Report Type: 
  Country: None (occurrence: None)
  Receive Date: 20071219
  Receipt Date: 20071219
  Transmission Date: 20080405
  Serious: Yes (Hospitalization, Other)
  Sender: FDA-Public Use
  Company Number: None

PATIENT
  Sex: Female
  Weight: 73.0291 kg

DRUGS (1)
  1. BYETTA [Suspect]
     Indication: DIABETES MELLITUS INADEQUATE CONTROL
     Dosage: 5 MCG AND UP TO 10 MCG BID SQ
     Route: 058
     Dates: start: 20050713, end: 20071205

REACTIONS (2)
  - PANCREATITIS [None]
  - WEIGHT DECREASED [None]
